FAERS Safety Report 9836923 (Version 1)
Quarter: 2013Q4

REPORT INFORMATION
  Report Type: Spontaneous
  Country: US (occurrence: None)
  Receive Date: 20131120
  Receipt Date: 20131120
  Transmission Date: 20140711
  Serious: Yes (Other)
  Sender: FDA-Public Use
  Company Number: 1000048860

PATIENT
  Age: 42 Year
  Sex: Female

DRUGS (4)
  1. VIIBRYD [Suspect]
     Indication: DEPRESSION
     Route: 048
     Dates: start: 201308, end: 201308
  2. WELLBUTRIN (BUPROPION HYDROCHLORIDE) [Suspect]
     Indication: DEPRESSION
     Route: 048
     Dates: end: 20130911
  3. ADDERALL (AMPHETAMINE DEXTROMETHAMINE) (AMPHETAMINE DEXTROAMPHETAMINE) [Concomitant]
  4. LISINOPRIL (LISINOPRIL)(LISINOPRIL) [Concomitant]

REACTIONS (2)
  - Skin warm [None]
  - Paraesthesia [None]
